FAERS Safety Report 4631124-1 (Version None)
Quarter: 2005Q2

REPORT INFORMATION
  Report Type: 
  Country: None (occurrence: None)
  Receive Date: 20050407
  Receipt Date: 20050407
  Transmission Date: 20051028
  Serious: Yes (Hospitalization)
  Sender: FDA-Public Use
  Company Number: None

PATIENT
  Age: 38 Year
  Sex: Female

DRUGS (1)
  1. ZYVOX [Suspect]
     Indication: INFECTION
     Dosage: 600 MG    Q 12 HRS   INTRAVENOU
     Route: 042
     Dates: start: 20031211, end: 20031219

REACTIONS (1)
  - PLATELET COUNT DECREASED [None]
